FAERS Safety Report 5550685-1 (Version None)
Quarter: 2007Q4

REPORT INFORMATION
  Report Type: 
  Country: None (occurrence: None)
  Receive Date: 20071212
  Receipt Date: 20071127
  Transmission Date: 20080405
  Serious: Yes (Other)
  Sender: FDA-Public Use
  Company Number: US-BAYER-200713705BCC

PATIENT
  Sex: Male
  Weight: 61 kg

DRUGS (1)
  1. CAMPHO-PHENIQUE [Suspect]
     Indication: ORAL HERPES
     Route: 061

REACTIONS (1)
  - RENAL CYST [None]
